FAERS Safety Report 7499210-9 (Version None)
Quarter: 2011Q2

REPORT INFORMATION
  Report Type: 
  Country: None (occurrence: None)
  Receive Date: 20110516
  Receipt Date: 20110429
  Transmission Date: 20111010
  Serious: Yes (Other)
  Sender: FDA-Public Use
  Company Number: 029785

PATIENT
  Sex: Male

DRUGS (4)
  1. KEPPRA [Suspect]
     Indication: BRAIN NEOPLASM MALIGNANT
     Dosage: 500 MG BID, TRANSPLACENTAL
     Route: 064
     Dates: start: 20080101, end: 20090130
  2. PRENATAL VITAMINS [Concomitant]
  3. ACETAMINOPHEN [Concomitant]
  4. FOLIC ACID [Concomitant]

REACTIONS (3)
  - SPEECH DISORDER DEVELOPMENTAL [None]
  - PREMATURE BABY [None]
  - MATERNAL DRUGS AFFECTING FOETUS [None]
